FAERS Safety Report 12501836 (Version 2)
Quarter: 2017Q1

REPORT INFORMATION
  Report Type: Report from Study
  Country: ES (occurrence: ES)
  Receive Date: 20160627
  Receipt Date: 20170203
  Transmission Date: 20170428
  Serious: Yes (Life-Threatening, Hospitalization)
  Sender: FDA-Public Use
  Company Number: ES-OTSUKA-2016_015483

PATIENT
  Age: 80 Year
  Sex: Female

DRUGS (2)
  1. DECITABINE. [Suspect]
     Active Substance: DECITABINE
     Indication: ACUTE MYELOID LEUKAEMIA
     Dosage: 32 ?G
     Route: 042
     Dates: start: 20160603
  2. *JNJ-56022473 [Suspect]
     Active Substance: INVESTIGATIONAL PRODUCT
     Indication: ACUTE MYELOID LEUKAEMIA
     Dosage: 648 MG, 1 IN 1 DAY
     Route: 042
     Dates: start: 20160610, end: 20160610

REACTIONS (1)
  - Anuria [Recovered/Resolved]

NARRATIVE: CASE EVENT DATE: 20160610
